FAERS Safety Report 8359993-2 (Version None)
Quarter: 2012Q2

REPORT INFORMATION
  Report Type: 
  Country: None (occurrence: None)
  Receive Date: 20120515
  Receipt Date: 20120509
  Transmission Date: 20120825
  Serious: Yes (Other)
  Sender: FDA-Public Use
  Company Number: PHEH2010US03465

PATIENT
  Sex: Male

DRUGS (8)
  1. THALIDOMIDE [Concomitant]
     Dosage: 50 MG, QD
  2. CLONAZEPAM [Suspect]
     Dosage: 0.5 MG
  3. AREDIA [Suspect]
     Route: 042
  4. TEGRETOL [Concomitant]
     Dosage: 200 MG, BID
  5. DEXAMETHASONE [Concomitant]
  6. NEURONTIN [Concomitant]
     Dosage: 300 MG, TID
  7. OXYCONTIN [Concomitant]
  8. ZOMETA [Suspect]
     Dosage: 4 MG, QMO
     Route: 042

REACTIONS (17)
  - OVERDOSE [None]
  - HYPOAESTHESIA ORAL [None]
  - MENTAL DISORDER [None]
  - INFECTION [None]
  - INJURY [None]
  - OSTEOMYELITIS [None]
  - OSTEONECROSIS [None]
  - OSTEONECROSIS OF JAW [None]
  - NEUROPATHY PERIPHERAL [None]
  - NASAL SEPTUM DEVIATION [None]
  - DEFORMITY [None]
  - MULTIPLE MYELOMA [None]
  - ANAEMIA [None]
  - PAIN [None]
  - OTITIS EXTERNA [None]
  - ORAL CAVITY FISTULA [None]
  - TINNITUS [None]
